FAERS Safety Report 21309885 (Version 1)
Quarter: 2022Q3

REPORT INFORMATION
  Report Type: Spontaneous
  Country: US (occurrence: US)
  Receive Date: 20220908
  Receipt Date: 20220908
  Transmission Date: 20221027
  Serious: Yes (Other)
  Sender: FDA-Public Use
  Company Number: US-ALVOGEN-2022-ALVOGEN-120833

PATIENT
  Age: 75 Year
  Sex: Male

DRUGS (2)
  1. LISINOPRIL [Suspect]
     Active Substance: LISINOPRIL
     Indication: Product used for unknown indication
  2. ENZALUTAMIDE [Suspect]
     Active Substance: ENZALUTAMIDE
     Indication: Prostate cancer
     Route: 048
     Dates: start: 20210520

REACTIONS (15)
  - Arthritis [Unknown]
  - Hyperhidrosis [Unknown]
  - Paraesthesia [Unknown]
  - Pain in extremity [Unknown]
  - Polyuria [Unknown]
  - Fall [Unknown]
  - Hot flush [Unknown]
  - Formication [Unknown]
  - Urinary tract infection [Unknown]
  - Sciatica [Unknown]
  - Loss of personal independence in daily activities [Unknown]
  - Swelling face [Unknown]
  - Cough [Unknown]
  - Blood pressure increased [Not Recovered/Not Resolved]
  - Pruritus [Unknown]
